FAERS Safety Report 7508773-6 (Version None)
Quarter: 2011Q2

REPORT INFORMATION
  Report Type: 
  Country: None (occurrence: None)
  Receive Date: 20110527
  Receipt Date: 20110207
  Transmission Date: 20111010
  Serious: No
  Sender: FDA-Public Use
  Company Number: A0912283A

PATIENT
  Age: 70 Year
  Sex: Male

DRUGS (8)
  1. GLUCOPHAGE [Concomitant]
  2. NASACORT [Concomitant]
  3. ACTOS [Concomitant]
  4. MULTI-VITAMIN [Concomitant]
  5. VENTOLIN [Suspect]
     Indication: WHEEZING
     Dosage: 2SPR AS REQUIRED
     Route: 055
     Dates: start: 20110204, end: 20110206
  6. AVAPRO [Concomitant]
  7. CIALIS [Concomitant]
  8. GLIMEPIRIDE [Concomitant]

REACTIONS (2)
  - HEADACHE [None]
  - ACCIDENTAL OVERDOSE [None]
